FAERS Safety Report 6934847-4 (Version None)
Quarter: 2010Q3

REPORT INFORMATION
  Report Type: 
  Country: None (occurrence: None)
  Receive Date: 20100820
  Receipt Date: 20100806
  Transmission Date: 20110219
  Serious: Yes (Other)
  Sender: FDA-Public Use
  Company Number: PHHY2010AU52236

PATIENT
  Sex: Female

DRUGS (1)
  1. ZOLEDRONIC [Suspect]
     Dosage: 5 MG, UNK
     Dates: start: 20090609

REACTIONS (3)
  - CARDIAC FIBRILLATION [None]
  - DYSPNOEA [None]
  - HYPERTENSION [None]
